FAERS Safety Report 5528681-X (Version None)
Quarter: 2007Q4

REPORT INFORMATION
  Report Type: 
  Country: None (occurrence: None)
  Receive Date: 20071129
  Receipt Date: 20071121
  Transmission Date: 20080405
  Serious: Yes (Disabling)
  Sender: FDA-Public Use
  Company Number: PHRM2007FR02639

PATIENT
  Age: 77 Year
  Sex: Female

DRUGS (1)
  1. VALSARTAN [Suspect]
     Indication: HYPERTENSION
     Route: 048

REACTIONS (2)
  - VISION BLURRED [None]
  - VISUAL DISTURBANCE [None]
